FAERS Safety Report 25674713 (Version 1)
Quarter: 2025Q3

REPORT INFORMATION
  Report Type: Spontaneous
  Country: US (occurrence: US)
  Receive Date: 20250813
  Receipt Date: 20250813
  Transmission Date: 20251020
  Serious: Yes (Other)
  Sender: SANOFI AVENTIS
  Company Number: US-SA-2025SA235752

PATIENT
  Age: 59 Year
  Sex: Male

DRUGS (1)
  1. DUPIXENT [Suspect]
     Active Substance: DUPILUMAB
     Route: 058

REACTIONS (6)
  - Blindness [Unknown]
  - Feeling of despair [Unknown]
  - Emotional distress [Unknown]
  - Frustration tolerance decreased [Unknown]
  - Quality of life decreased [Unknown]
  - Drug ineffective [Unknown]
